FAERS Safety Report 17149514 (Version 3)
Quarter: 2020Q1

REPORT INFORMATION
  Report Type: Report from Study
  Country: US (occurrence: US)
  Receive Date: 20191213
  Receipt Date: 20200210
  Transmission Date: 20200409
  Serious: Yes (Death, Hospitalization, Disabling)
  Sender: FDA-Public Use
  Company Number: US-ACTELION-A-NJ2019-199434

PATIENT
  Age: 54 Year
  Sex: Female

DRUGS (1)
  1. OPSUMIT [Suspect]
     Active Substance: MACITENTAN
     Indication: PRODUCT USED FOR UNKNOWN INDICATION
     Dosage: UNK
     Route: 048

REACTIONS (10)
  - Disability [Unknown]
  - Oedema peripheral [Unknown]
  - Fracture treatment [Unknown]
  - Respiration abnormal [Unknown]
  - Cardiac disorder [Unknown]
  - Death [Fatal]
  - Fall [Unknown]
  - Pain in extremity [Unknown]
  - Lower limb fracture [Unknown]
  - Pulmonary oedema [Unknown]

NARRATIVE: CASE EVENT DATE: 20191230
